FAERS Safety Report 14682232 (Version 3)
Quarter: 2020Q3

REPORT INFORMATION
  Report Type: Spontaneous
  Country: US (occurrence: US)
  Receive Date: 20180326
  Receipt Date: 20200821
  Transmission Date: 20201102
  Serious: No
  Sender: FDA-Public Use
  Company Number: US-ASTRAZENECA-2018SE36623

PATIENT
  Age: 24095 Day
  Sex: Male
  Weight: 95.3 kg

DRUGS (6)
  1. METFORMIN [Concomitant]
     Active Substance: METFORMIN HYDROCHLORIDE
     Indication: TYPE 2 DIABETES MELLITUS
     Route: 048
  2. BYDUREON [Suspect]
     Active Substance: EXENATIDE
     Indication: TYPE 2 DIABETES MELLITUS
     Route: 058
     Dates: start: 20180314
  3. FARXIGA [Suspect]
     Active Substance: DAPAGLIFLOZIN PROPANEDIOL
     Indication: TYPE 2 DIABETES MELLITUS
     Route: 048
     Dates: start: 201802, end: 20180320
  4. JARDIANCE [Concomitant]
     Active Substance: EMPAGLIFLOZIN
     Indication: TYPE 2 DIABETES MELLITUS
     Route: 048
  5. VICTOZA [Concomitant]
     Active Substance: LIRAGLUTIDE
     Indication: TYPE 2 DIABETES MELLITUS
     Dosage: DAILY
     Route: 058
     Dates: end: 20180313
  6. AMBIEN [Concomitant]
     Active Substance: ZOLPIDEM TARTRATE
     Indication: SLEEP APNOEA SYNDROME
     Route: 048

REACTIONS (10)
  - Pollakiuria [Unknown]
  - Device malfunction [Unknown]
  - Injection site haemorrhage [Recovered/Resolved]
  - Product dose omission issue [Unknown]
  - Intentional product misuse [Unknown]
  - Terminal dribbling [Unknown]
  - Injection site bruising [Recovering/Resolving]
  - Injection site nodule [Recovering/Resolving]
  - Device leakage [Unknown]
  - Wrong technique in product usage process [Unknown]

NARRATIVE: CASE EVENT DATE: 20180321
